FAERS Safety Report 25533651 (Version 1)
Quarter: 2025Q3

REPORT INFORMATION
  Report Type: Other
  Country: IR (occurrence: IR)
  Receive Date: 20250709
  Receipt Date: 20250709
  Transmission Date: 20251020
  Serious: Yes (Life-Threatening, Hospitalization, Other)
  Sender: Hibrow Healthcare
  Company Number: IR-Hibrow Healthcare Private Ltd-2180167

PATIENT
  Age: 16 Year
  Sex: Female

DRUGS (1)
  1. BACLOFEN [Suspect]
     Active Substance: BACLOFEN
     Indication: Product used for unknown indication

REACTIONS (2)
  - Respiratory failure [Recovered/Resolved]
  - Intentional product misuse [Unknown]
